FAERS Safety Report 21812431 (Version 1)
Quarter: 2023Q1

REPORT INFORMATION
  Report Type: Report from Study
  Country: US (occurrence: US)
  Receive Date: 20230103
  Receipt Date: 20230103
  Transmission Date: 20230418
  Serious: No
  Sender: FDA-Public Use
  Company Number: US-ABBVIE-4222604

PATIENT

DRUGS (2)
  1. RINVOQ [Suspect]
     Active Substance: UPADACITINIB
     Indication: Product used for unknown indication
     Route: 048
  2. LACTOFERRIN [Concomitant]
     Active Substance: LACTOFERRIN
     Indication: Product used for unknown indication

REACTIONS (1)
  - Oral herpes [Recovered/Resolved]
